FAERS Safety Report 5354149-X (Version None)
Quarter: 2007Q2

REPORT INFORMATION
  Report Type: 
  Country: None (occurrence: None)
  Receive Date: 20070612
  Receipt Date: 20070530
  Transmission Date: 20071010
  Serious: Yes (Hospitalization, Other)
  Sender: FDA-Public Use
  Company Number: US-ELI_LILLY_AND_COMPANY-US200705000964

PATIENT
  Sex: Male

DRUGS (4)
  1. HUMALOG [Suspect]
     Indication: DIABETES MELLITUS
     Dosage: UNK, EACH MORNING
     Dates: start: 20000101, end: 20070101
  2. HUMALOG [Suspect]
     Dosage: UNK, 3/D
     Dates: start: 20070101
  3. HUMULIN N [Suspect]
     Indication: DIABETES MELLITUS
     Dosage: UNK, EACH MORNING
     Dates: end: 20070101
  4. LANTUS [Concomitant]
     Indication: DIABETES MELLITUS
     Dosage: UNK, EACH EVENING

REACTIONS (8)
  - ANOREXIA [None]
  - ASTHENIA [None]
  - BLOOD GLUCOSE INCREASED [None]
  - CONJUNCTIVITIS INFECTIVE [None]
  - MALAISE [None]
  - NAUSEA [None]
  - VIRAL INFECTION [None]
  - VOMITING [None]
